FAERS Safety Report 6838880-2 (Version None)
Quarter: 2010Q3

REPORT INFORMATION
  Report Type: 
  Country: None (occurrence: None)
  Receive Date: 20100713
  Receipt Date: 20070716
  Transmission Date: 20110219
  Serious: Yes (Other)
  Sender: FDA-Public Use
  Company Number: US-PFIZER INC-2007043080

PATIENT
  Sex: Female
  Weight: 58.1 kg

DRUGS (5)
  1. CHANTIX [Suspect]
     Indication: SMOKING CESSATION THERAPY
     Dates: start: 20070409, end: 20070514
  2. LEVOXYL [Concomitant]
  3. LOVASTATIN [Concomitant]
  4. ACETYLSALICYLIC ACID [Concomitant]
     Dosage: DAILY
  5. PEPCID [Concomitant]

REACTIONS (5)
  - DRY EYE [None]
  - EYE PAIN [None]
  - NAUSEA [None]
  - PHOTOPHOBIA [None]
  - VISION BLURRED [None]
